FAERS Safety Report 21810929 (Version 1)
Quarter: 2023Q1

REPORT INFORMATION
  Report Type: Spontaneous
  Country: FR (occurrence: FR)
  Receive Date: 20230103
  Receipt Date: 20230103
  Transmission Date: 20230417
  Serious: Yes (Hospitalization, Other)
  Sender: FDA-Public Use
  Company Number: None

PATIENT

DRUGS (2)
  1. ATOVAQUONE [Suspect]
     Active Substance: ATOVAQUONE
     Indication: Malaria
     Dosage: UNK
     Route: 048
     Dates: start: 20220810, end: 20220811
  2. PROGUANIL HYDROCHLORIDE [Suspect]
     Active Substance: PROGUANIL HYDROCHLORIDE
     Indication: Malaria
     Dosage: UNK
     Route: 048
     Dates: start: 20220810, end: 20220811

REACTIONS (1)
  - Drug reaction with eosinophilia and systemic symptoms [Recovered/Resolved]

NARRATIVE: CASE EVENT DATE: 20220811
